FAERS Safety Report 11929585 (Version 1)
Quarter: 2016Q1

REPORT INFORMATION
  Report Type: Spontaneous
  Country: IT (occurrence: IT)
  Receive Date: 20160120
  Receipt Date: 20160120
  Transmission Date: 20160526
  Serious: Yes (Other)
  Sender: FDA-Public Use
  Company Number: IT-BEH-2016057840

PATIENT
  Age: 37 Year
  Sex: Male

DRUGS (4)
  1. PREDNISONE. [Suspect]
     Active Substance: PREDNISONE
     Route: 048
  2. IVIG [Suspect]
     Active Substance: HUMAN IMMUNOGLOBULIN G
     Indication: POLYMYOSITIS
     Dosage: HIGH DOSE. 2 INFUSIONS 5 DAYS EACH.
     Route: 042
  3. IVIG [Suspect]
     Active Substance: HUMAN IMMUNOGLOBULIN G
     Indication: DERMATOMYOSITIS
     Dosage: HIGH DOSE. 2 INFUSIONS 5 DAYS EACH.
     Route: 042
  4. PREDNISONE. [Suspect]
     Active Substance: PREDNISONE
     Dosage: HIGH DOSAGE
     Route: 042

REACTIONS (3)
  - Drug ineffective for unapproved indication [Unknown]
  - Respiratory distress [Unknown]
  - Pneumonia aspiration [Unknown]
